FAERS Safety Report 8257214-2 (Version None)
Quarter: 2012Q2

REPORT INFORMATION
  Report Type: 
  Country: None (occurrence: None)
  Receive Date: 20120403
  Receipt Date: 20120325
  Transmission Date: 20120825
  Serious: Yes (Death, Life-Threatening, Hospitalization)
  Sender: FDA-Public Use
  Company Number: JP-AMGEN-JPNCT2011051268

PATIENT
  Age: 76 Year
  Sex: Male
  Weight: 50 kg

DRUGS (2)
  1. PANITUMUMAB [Suspect]
     Indication: COLORECTAL CANCER
     Dosage: UNK, Q2WK
     Route: 041
     Dates: start: 20110907, end: 20110907
  2. DECADRON [Concomitant]
     Dosage: UNK UNK, QD
     Route: 041
     Dates: start: 20110907, end: 20110907

REACTIONS (9)
  - DISORIENTATION [None]
  - MALAISE [None]
  - PYREXIA [None]
  - HYPOPHAGIA [None]
  - CACHEXIA [None]
  - INTERSTITIAL LUNG DISEASE [None]
  - BLOOD ALBUMIN DECREASED [None]
  - MALNUTRITION [None]
  - TACHYPNOEA [None]
